FAERS Safety Report 14771720 (Version 1)
Quarter: 2018Q2

REPORT INFORMATION
  Report Type: Spontaneous
  Country: US (occurrence: US)
  Receive Date: 20180417
  Receipt Date: 20180417
  Transmission Date: 20180711
  Serious: No
  Sender: FDA-Public Use
  Company Number: US-ALLERGAN-1769270US

PATIENT
  Age: 35 Year
  Sex: Female
  Weight: 63.49 kg

DRUGS (2)
  1. LATISSE [Suspect]
     Active Substance: BIMATOPROST
     Indication: GROWTH OF EYELASHES
     Dosage: 1 GTT, QHS
     Route: 061
     Dates: start: 2014, end: 201711
  2. VITAMINS [Concomitant]
     Active Substance: VITAMINS
     Dosage: UNK
     Route: 065

REACTIONS (3)
  - Growth of eyelashes [Not Recovered/Not Resolved]
  - Ocular hyperaemia [Recovered/Resolved]
  - Madarosis [Not Recovered/Not Resolved]

NARRATIVE: CASE EVENT DATE: 201711
